FAERS Safety Report 9101596 (Version 1)
Quarter: 2013Q1

REPORT INFORMATION
  Report Type: Spontaneous
  Country: IT (occurrence: IT)
  Receive Date: 20130218
  Receipt Date: 20130218
  Transmission Date: 20140127
  Serious: Yes (Hospitalization)
  Sender: FDA-Public Use
  Company Number: IT-BAYER-2013-020837

PATIENT
  Age: 79 Year
  Sex: Male

DRUGS (8)
  1. CARDIOASPIRIN [Suspect]
     Indication: THROMBOSIS PROPHYLAXIS
     Dosage: DAILY DOSE 25 MG
     Route: 048
     Dates: start: 20120101, end: 20120314
  2. MEDROL [Suspect]
     Dosage: DAILY DOSE 16 MG
     Route: 048
     Dates: start: 20110801, end: 20120314
  3. SINTROM [Suspect]
     Dosage: 1 DF, PRN
     Route: 048
     Dates: start: 20120101, end: 20120314
  4. BISOPROLOL [Concomitant]
     Dosage: DAILY DOSE 1.25 MG
     Route: 048
  5. LANSOX [Concomitant]
     Dosage: UNK
     Route: 048
  6. LOSAPREX [Concomitant]
     Dosage: UNK
     Route: 048
  7. NITRO-DUR [Concomitant]
     Dosage: UNK
     Route: 062
  8. LASIX [Concomitant]
     Dosage: UNK
     Route: 048

REACTIONS (1)
  - Melaena [Unknown]
